FAERS Safety Report 12273571 (Version 4)
Quarter: 2016Q3

REPORT INFORMATION
  Report Type: Report from Study
  Country: BR (occurrence: BR)
  Receive Date: 20160415
  Receipt Date: 20160719
  Transmission Date: 20161109
  Serious: Yes (Other)
  Sender: FDA-Public Use
  Company Number: PHHY2016BR036848

PATIENT
  Age: 39 Year
  Sex: Female
  Weight: 44.9 kg

DRUGS (9)
  1. ZINA [Concomitant]
     Active Substance: LEVOCETIRIZINE DIHYDROCHLORIDE
     Indication: ALLERGY TO ANIMAL
  2. INSULIN [Concomitant]
     Active Substance: INSULIN NOS
     Indication: TYPE 1 DIABETES MELLITUS
  3. ZINA [Concomitant]
     Active Substance: LEVOCETIRIZINE DIHYDROCHLORIDE
     Indication: HYPERSENSITIVITY
     Dosage: 1 DF, QD (LONG TIME AGO)
     Route: 048
  4. PREBICTAL [Concomitant]
     Active Substance: PREGABALIN
     Indication: HYPERSENSITIVITY
     Dosage: 50 MG, BID
     Route: 065
     Dates: start: 20160111
  5. INSULIN [Concomitant]
     Active Substance: INSULIN NOS
     Indication: DIABETIC NEUROPATHY
     Dosage: UNK
     Route: 065
  6. ZINA [Concomitant]
     Active Substance: LEVOCETIRIZINE DIHYDROCHLORIDE
     Indication: DUST ALLERGY
  7. GILENYA [Suspect]
     Active Substance: FINGOLIMOD HYDROCHLORIDE
     Indication: MULTIPLE SCLEROSIS
     Dosage: 0.5 MG, QD
     Route: 048
     Dates: start: 20160301
  8. GILENYA [Suspect]
     Active Substance: FINGOLIMOD HYDROCHLORIDE
     Dosage: 0.5 MG, QD
     Route: 048
     Dates: end: 20160711
  9. VELIJA [Concomitant]
     Active Substance: DULOXETINE HYDROCHLORIDE
     Indication: HYPERSENSITIVITY
     Dosage: 30 MG, QD
     Route: 065
     Dates: start: 20160111

REACTIONS (38)
  - Epistaxis [Not Recovered/Not Resolved]
  - Facial pain [Not Recovered/Not Resolved]
  - Pruritus [Recovering/Resolving]
  - Dermatitis bullous [Not Recovered/Not Resolved]
  - Arthralgia [Unknown]
  - Skin burning sensation [Unknown]
  - White blood cell count decreased [Not Recovered/Not Resolved]
  - Throat irritation [Not Recovered/Not Resolved]
  - Asthenia [Recovering/Resolving]
  - Neuralgia [Unknown]
  - Dizziness [Unknown]
  - Rhinorrhoea [Not Recovered/Not Resolved]
  - Nasal injury [Recovering/Resolving]
  - Eye allergy [Not Recovered/Not Resolved]
  - Eye pruritus [Recovering/Resolving]
  - Ocular hyperaemia [Not Recovered/Not Resolved]
  - Apathy [Recovering/Resolving]
  - Lymphocyte count decreased [Not Recovered/Not Resolved]
  - Face oedema [Not Recovered/Not Resolved]
  - Nasal pruritus [Not Recovered/Not Resolved]
  - Nasal dryness [Recovering/Resolving]
  - Malaise [Unknown]
  - Somnolence [Not Recovered/Not Resolved]
  - Eye swelling [Recovering/Resolving]
  - Anaemia [Not Recovered/Not Resolved]
  - Eating disorder [Recovering/Resolving]
  - Dermatitis atopic [Not Recovered/Not Resolved]
  - Eye oedema [Not Recovered/Not Resolved]
  - Headache [Recovered/Resolved]
  - Anxiety [Recovering/Resolving]
  - Paraesthesia [Not Recovered/Not Resolved]
  - Concomitant disease aggravated [Not Recovered/Not Resolved]
  - Dyskinesia [Not Recovered/Not Resolved]
  - Dyspnoea [Unknown]
  - Eye injury [Not Recovered/Not Resolved]
  - Limb injury [Not Recovered/Not Resolved]
  - Abdominal pain [Recovering/Resolving]
  - Retching [Recovering/Resolving]

NARRATIVE: CASE EVENT DATE: 20160301
